FAERS Safety Report 14912449 (Version 4)
Quarter: 2018Q2

REPORT INFORMATION
  Report Type: Report from Study
  Country: KR (occurrence: KR)
  Receive Date: 20180518
  Receipt Date: 20180606
  Transmission Date: 20180711
  Serious: Yes (Hospitalization)
  Sender: FDA-Public Use
  Company Number: KR-ROCHE-2123724

PATIENT
  Age: 39 Year
  Sex: Female
  Weight: 57 kg

DRUGS (34)
  1. MORPHINE SULFATE. [Concomitant]
     Active Substance: MORPHINE SULFATE
     Route: 042
     Dates: start: 20180422, end: 20180422
  2. MORPHINE SULFATE. [Concomitant]
     Active Substance: MORPHINE SULFATE
     Route: 042
     Dates: start: 20180421, end: 20180422
  3. MEROPEN [Concomitant]
     Active Substance: MEROPENEM
     Route: 042
     Dates: start: 20180420, end: 20180427
  4. DUROGESIC D TRANS [Concomitant]
     Active Substance: FENTANYL
     Dosage: 2.1 MG/25 MCG/HR
     Route: 062
     Dates: start: 20180426, end: 20180426
  5. FURTMAN [Concomitant]
     Route: 042
     Dates: start: 20180423, end: 20180423
  6. NORZYME [Concomitant]
     Route: 048
     Dates: start: 20180425, end: 20180427
  7. MORPHINE SULFATE. [Concomitant]
     Active Substance: MORPHINE SULFATE
     Route: 042
     Dates: start: 20180420, end: 20180420
  8. DUROGESIC D TRANS [Concomitant]
     Active Substance: FENTANYL
     Dosage: 4.2 MG/ 25 MCG/HR
     Route: 062
     Dates: start: 20180420, end: 20180420
  9. DUROGESIC D TRANS [Concomitant]
     Active Substance: FENTANYL
     Dosage: 2.1 MG/25 MCG/HR
     Route: 062
     Dates: start: 20180423, end: 20180423
  10. IRCODON [Concomitant]
     Active Substance: OXYCODONE HYDROCHLORIDE
     Route: 048
     Dates: start: 20180422, end: 20180422
  11. DEXTROSE. [Concomitant]
     Active Substance: DEXTROSE
     Route: 042
     Dates: start: 20180420, end: 20180420
  12. DUROGESIC D TRANS [Concomitant]
     Active Substance: FENTANYL
     Dosage: 4.2 MG/25 MCG/HR
     Route: 062
     Dates: start: 20180426, end: 20180426
  13. URSA [Concomitant]
     Active Substance: URSODIOL
     Route: 048
     Dates: start: 20180426, end: 20180427
  14. MORPHINE SULFATE. [Concomitant]
     Active Substance: MORPHINE SULFATE
     Route: 042
     Dates: start: 20180420, end: 20180420
  15. CURAN [Concomitant]
     Active Substance: RANITIDINE HYDROCHLORIDE
     Route: 042
     Dates: start: 20180420, end: 20180423
  16. COBIMETINIB. [Suspect]
     Active Substance: COBIMETINIB
     Route: 048
     Dates: start: 20180503, end: 20180509
  17. HM95573 (RAF KINASE INHIBITOR) [Suspect]
     Active Substance: INVESTIGATIONAL PRODUCT
     Route: 048
     Dates: start: 20180418
  18. MORPHINE SULFATE. [Concomitant]
     Active Substance: MORPHINE SULFATE
     Route: 042
     Dates: start: 20180420, end: 20180420
  19. CURAN [Concomitant]
     Active Substance: RANITIDINE HYDROCHLORIDE
     Route: 042
     Dates: start: 20180424, end: 20180424
  20. DENOGAN [Concomitant]
     Active Substance: PROPACETAMOL HYDROCHLORIDE
     Route: 042
     Dates: start: 20180420, end: 20180420
  21. NORMAL SALINE [Concomitant]
     Active Substance: SODIUM CHLORIDE
     Route: 042
     Dates: start: 20180420, end: 20180423
  22. MAGNESIUM OXIDE. [Concomitant]
     Active Substance: MAGNESIUM OXIDE
     Route: 048
     Dates: start: 20180423, end: 20180427
  23. SMOFLIPID [Concomitant]
     Active Substance: FISH OIL\MEDIUM-CHAIN TRIGLYCERIDES\OLIVE OIL\SOYBEAN OIL
     Route: 042
     Dates: start: 20180426, end: 20180426
  24. HM95573 (RAF KINASE INHIBITOR) [Suspect]
     Active Substance: INVESTIGATIONAL PRODUCT
     Indication: RECTAL CANCER
     Dosage: MOST RECENT DOSE DATE WAS 21/MAY/2018 PRIOR TO AMYLASE AND LYPASE INCREASE
     Route: 048
     Dates: start: 20180503, end: 20180509
  25. TYLENOL [Concomitant]
     Active Substance: ACETAMINOPHEN
     Route: 048
     Dates: start: 20180421, end: 20180421
  26. DUPHALAC EASY [Concomitant]
     Indication: CONSTIPATION
     Route: 048
     Dates: start: 20180423, end: 20180424
  27. CURAN [Concomitant]
     Active Substance: RANITIDINE HYDROCHLORIDE
     Route: 042
     Dates: start: 20180420, end: 20180420
  28. DEXTROSE. [Concomitant]
     Active Substance: DEXTROSE
     Route: 042
     Dates: start: 20180420, end: 20180427
  29. MOTILITONE [Concomitant]
     Active Substance: HERBALS
     Route: 048
     Dates: start: 20180425, end: 20180427
  30. COBIMETINIB. [Suspect]
     Active Substance: COBIMETINIB
     Indication: RECTAL CANCER
     Dosage: MOST RECENT DOSE DATE WAS 21/MAY/2018 PRIOR TO AMYLASE AND LYPASE INCREASE
     Route: 048
     Dates: start: 20180418
  31. DUROGESIC D TRANS [Concomitant]
     Active Substance: FENTANYL
     Dosage: 4.2 MG/25MCG/HR
     Route: 062
     Dates: start: 20180423, end: 20180423
  32. FLIVAS [Concomitant]
     Active Substance: NAFTOPIDIL
     Route: 048
     Dates: start: 20180420, end: 20180426
  33. IRCODON [Concomitant]
     Active Substance: OXYCODONE HYDROCHLORIDE
     Route: 048
     Dates: start: 20180421, end: 20180421
  34. DUPHALAC EASY [Concomitant]
     Route: 048
     Dates: start: 20180424, end: 20180427

REACTIONS (4)
  - Pyrexia [Recovered/Resolved]
  - Amylase increased [Recovered/Resolved]
  - Dyspnoea [Recovered/Resolved]
  - Lipase increased [Recovered/Resolved]

NARRATIVE: CASE EVENT DATE: 20180502
